FAERS Safety Report 10025186 (Version 2)
Quarter: 2014Q2

REPORT INFORMATION
  Report Type: Spontaneous
  Country: US (occurrence: US)
  Receive Date: 20140320
  Receipt Date: 20140424
  Transmission Date: 20141212
  Serious: No
  Sender: FDA-Public Use
  Company Number: US-009507513-1403USA008737

PATIENT
  Age: 29 Year
  Sex: Female

DRUGS (1)
  1. PREGNYL [Suspect]
     Indication: ASSISTED FERTILISATION
     Dosage: UNK
     Dates: start: 201402

REACTIONS (1)
  - Drug ineffective [Unknown]
